FAERS Safety Report 25681385 (Version 1)
Quarter: 2025Q3

REPORT INFORMATION
  Report Type: Spontaneous
  Country: GB (occurrence: GB)
  Receive Date: 20250814
  Receipt Date: 20250814
  Transmission Date: 20251020
  Serious: Yes (Other)
  Sender: Atnahs Healthcare
  Company Number: None

PATIENT

DRUGS (3)
  1. NAPROXEN [Suspect]
     Active Substance: NAPROXEN
     Indication: Adverse drug reaction
     Route: 065
     Dates: start: 202410
  2. NAPROXEN [Suspect]
     Active Substance: NAPROXEN
     Indication: Musculoskeletal pain
     Route: 065
     Dates: start: 20250715, end: 20250715
  3. NAPROXEN [Suspect]
     Active Substance: NAPROXEN
     Route: 065
     Dates: start: 20250614

REACTIONS (1)
  - Stomatitis [Recovered/Resolved]

NARRATIVE: CASE EVENT DATE: 20250615
